FAERS Safety Report 11821375 (Version 2)
Quarter: 2016Q1

REPORT INFORMATION
  Report Type: Spontaneous
  Country: US (occurrence: US)
  Receive Date: 20151210
  Receipt Date: 20160115
  Transmission Date: 20160525
  Serious: No
  Sender: FDA-Public Use
  Company Number: US-PFIZER INC-2015394140

PATIENT
  Sex: Male

DRUGS (2)
  1. TETRACYCLINE HCL [Suspect]
     Active Substance: TETRACYCLINE HYDROCHLORIDE
     Dosage: UNK
  2. SEROMYCIN [Suspect]
     Active Substance: CYCLOSERINE
     Dosage: UNK

REACTIONS (1)
  - Drug hypersensitivity [Unknown]
